FAERS Safety Report 7377697-X (Version None)
Quarter: 2011Q1

REPORT INFORMATION
  Report Type: 
  Country: None (occurrence: None)
  Receive Date: 20110328
  Receipt Date: 20110318
  Transmission Date: 20110831
  Serious: Yes (Disabling, Other)
  Sender: FDA-Public Use
  Company Number: US-PFIZER INC-HQWYE234119JUL04

PATIENT
  Sex: Female
  Weight: 81 kg

DRUGS (1)
  1. PREMPRO [Suspect]
     Indication: HORMONE REPLACEMENT THERAPY
     Dosage: 0.625 MG/ 2.5 MG
     Route: 048
     Dates: start: 19991101, end: 20020801

REACTIONS (10)
  - BLOOD PRESSURE INCREASED [None]
  - MUSCLE SPASMS [None]
  - VAGINAL HAEMORRHAGE [None]
  - HOT FLUSH [None]
  - PALPITATIONS [None]
  - DEPRESSION [None]
  - PULMONARY EMBOLISM [None]
  - DISTURBANCE IN ATTENTION [None]
  - DYSPNOEA [None]
  - DIZZINESS [None]
